FAERS Safety Report 18199555 (Version 1)
Quarter: 2020Q3

REPORT INFORMATION
  Report Type: Spontaneous
  Country: SI (occurrence: SI)
  Receive Date: 20200826
  Receipt Date: 20200826
  Transmission Date: 20201103
  Serious: Yes (Hospitalization)
  Sender: FDA-Public Use
  Company Number: SI-SA-2020SA221948

PATIENT

DRUGS (5)
  1. SPIRONOLACTONE. [Concomitant]
     Active Substance: SPIRONOLACTONE
     Dosage: 50 MG
     Route: 065
  2. AMARYL [Suspect]
     Active Substance: GLIMEPIRIDE
     Indication: TYPE 2 DIABETES MELLITUS
     Dosage: 1X1
     Route: 048
     Dates: start: 20111008, end: 20121008
  3. EDEMID [Concomitant]
     Active Substance: FUROSEMIDE
     Dosage: 40MG IN THE MORNINGS AND 20 MG IN THE EVENINGS
     Route: 065
  4. MAREVAN [Concomitant]
     Active Substance: WARFARIN SODIUM
     Dosage: 1,5TBL/DAY
     Route: 065
  5. CONCOR [Concomitant]
     Active Substance: BISOPROLOL FUMARATE
     Dosage: 5 MG
     Route: 065

REACTIONS (6)
  - Paresis [Recovered/Resolved]
  - Facial paresis [Recovered/Resolved]
  - Dysarthria [Recovered/Resolved]
  - Hypoglycaemia [Recovered/Resolved]
  - Dry mouth [Recovered/Resolved]
  - Muscle spasticity [Recovered/Resolved]

NARRATIVE: CASE EVENT DATE: 20121008
